FAERS Safety Report 16873307 (Version 3)
Quarter: 2023Q2

REPORT INFORMATION
  Report Type: Spontaneous
  Country: SE (occurrence: SE)
  Receive Date: 20191001
  Receipt Date: 20230630
  Transmission Date: 20230722
  Serious: No
  Sender: FDA-Public Use
  Company Number: SE-EMERGENT BIOSOLUTIONS,-19000246SP

PATIENT

DRUGS (10)
  1. CNJ-016 [Suspect]
     Active Substance: HUMAN VACCINIA VIRUS IMMUNE GLOBULIN
     Indication: Cow pox
     Dosage: 300000 UNIT
     Route: 042
     Dates: start: 20190828
  2. CNJ-016 [Suspect]
     Active Substance: HUMAN VACCINIA VIRUS IMMUNE GLOBULIN
     Dosage: 300000 UNIT, SINGLE
     Route: 042
     Dates: start: 20190830
  3. CNJ-016 [Suspect]
     Active Substance: HUMAN VACCINIA VIRUS IMMUNE GLOBULIN
     Dosage: 300000 UNIT, SINGLE
     Route: 042
     Dates: start: 20190907
  4. CNJ-016 [Suspect]
     Active Substance: HUMAN VACCINIA VIRUS IMMUNE GLOBULIN
     Dosage: 300000 UNIT, SINGLE
     Route: 042
     Dates: start: 20190909
  5. TECOVIRIMAT [Concomitant]
     Active Substance: TECOVIRIMAT
     Indication: Cow pox
     Dosage: 600 MILLIGRAM, BID
     Route: 048
     Dates: start: 20190822
  6. BRINCIDOFOVIR [Concomitant]
     Active Substance: BRINCIDOFOVIR
     Indication: Cow pox
     Dosage: 200 MILLIGRAM, 1/WEEK
     Route: 048
     Dates: start: 20190814, end: 20190828
  7. CEFTAZIDIME [Concomitant]
     Active Substance: CEFTAZIDIME
     Indication: Pneumonia
     Dosage: 1 GRAM, TID
     Route: 042
     Dates: start: 20190820
  8. PIPERACILLIN AND TAZOBACTAM [Concomitant]
     Active Substance: PIPERACILLIN SODIUM\TAZOBACTAM SODIUM
     Indication: Pneumonia
     Dosage: 4.5 GRAM, BID
     Route: 042
     Dates: start: 20190802
  9. PREDNISOLONE [Concomitant]
     Active Substance: PREDNISOLONE
     Indication: Solid organ transplant
     Dosage: 10 MILLIGRAM, QD
     Route: 048
  10. CASPOFUNGIN [Concomitant]
     Active Substance: CASPOFUNGIN
     Indication: Fungal infection
     Dosage: 50 MILLIGRAM, QD
     Route: 042
     Dates: start: 20190822

REACTIONS (1)
  - Off label use [Recovered/Resolved]

NARRATIVE: CASE EVENT DATE: 20190828
